FAERS Safety Report 7677400-X (Version None)
Quarter: 2011Q3

REPORT INFORMATION
  Report Type: 
  Country: None (occurrence: None)
  Receive Date: 20110810
  Receipt Date: 20110810
  Transmission Date: 20111222
  Serious: Yes (Other)
  Sender: FDA-Public Use
  Company Number: None

PATIENT
  Age: 84 Year
  Sex: Female
  Weight: 71.6 kg

DRUGS (5)
  1. VITAMIN K TAB [Concomitant]
  2. VITAMIN K TAB [Concomitant]
  3. PRADAXA [Suspect]
  4. AMIODARONE HCL [Concomitant]
  5. ASPIRIN [Concomitant]

REACTIONS (5)
  - CLOSTRIDIUM DIFFICILE COLITIS [None]
  - RENAL FAILURE ACUTE [None]
  - TOXICITY TO VARIOUS AGENTS [None]
  - INTERNATIONAL NORMALISED RATIO INCREASED [None]
  - ACTIVATED PARTIAL THROMBOPLASTIN TIME PROLONGED [None]
